FAERS Safety Report 20979355 (Version 2)
Quarter: 2022Q2

REPORT INFORMATION
  Report Type: Spontaneous
  Country: US (occurrence: US)
  Receive Date: 20220620
  Receipt Date: 20220628
  Transmission Date: 20220720
  Serious: Yes (Other)
  Sender: FDA-Public Use
  Company Number: US-JNJFOC-20220626277

PATIENT
  Sex: Female

DRUGS (1)
  1. TYLENOL [Suspect]
     Active Substance: ACETAMINOPHEN
     Indication: Myalgia
     Dosage: 1 GELCAP ONLY TOOK ONE DOSE ON SUNDAY 05-JUN-2022
     Route: 065
     Dates: start: 20220605

REACTIONS (2)
  - Haemorrhage [Unknown]
  - Incorrect dose administered [Unknown]
